FAERS Safety Report 5799976-X (Version None)
Quarter: 2008Q3

REPORT INFORMATION
  Report Type: 
  Country: None (occurrence: None)
  Receive Date: 20080703
  Receipt Date: 20080620
  Transmission Date: 20090109
  Serious: Yes (Death)
  Sender: FDA-Public Use
  Company Number: US-ASTRAZENECA-2008AC01676

PATIENT
  Age: 33 Year
  Sex: Female

DRUGS (11)
  1. PROPOFOL [Suspect]
     Indication: SEDATION
  2. PROPOFOL [Suspect]
     Indication: INTRACRANIAL PRESSURE INCREASED
  3. PROPOFOL [Suspect]
     Dosage: AVERAGE DOSE 120 UG/KG/MIN
  4. PROPOFOL [Suspect]
     Dosage: AVERAGE DOSE 120 UG/KG/MIN
  5. PROPOFOL [Suspect]
  6. PROPOFOL [Suspect]
  7. PROPOFOL [Suspect]
  8. PROPOFOL [Suspect]
  9. MORPHINE [Concomitant]
     Indication: ANALGESIA
  10. NOREPINEPHRINE [Concomitant]
  11. PANCURONIUM [Concomitant]
     Indication: NEUROMUSCULAR BLOCKADE

REACTIONS (9)
  - ATRIOVENTRICULAR BLOCK FIRST DEGREE [None]
  - BLOOD TRIGLYCERIDES INCREASED [None]
  - BUNDLE BRANCH BLOCK LEFT [None]
  - BUNDLE BRANCH BLOCK RIGHT [None]
  - CARDIAC ARREST [None]
  - HYPOTENSION [None]
  - METABOLIC ACIDOSIS [None]
  - PROPOFOL INFUSION SYNDROME [None]
  - RHABDOMYOLYSIS [None]
